FAERS Safety Report 10903398 (Version 1)
Quarter: 2015Q1

REPORT INFORMATION
  Report Type: Report from Study
  Country: DK (occurrence: DK)
  Receive Date: 20150311
  Receipt Date: 20150311
  Transmission Date: 20150721
  Serious: Yes (Other)
  Sender: FDA-Public Use
  Company Number: DK-BEH-2015049499

PATIENT
  Age: 2 Month
  Sex: Male

DRUGS (1)
  1. PRIVIGEN [Suspect]
     Active Substance: HUMAN IMMUNOGLOBULIN G

REACTIONS (4)
  - Surgery [Unknown]
  - Congenital anomaly [Unknown]
  - Inguinal hernia [Unknown]
  - Foetal exposure during pregnancy [Unknown]
